FAERS Safety Report 11983483 (Version 3)
Quarter: 2016Q2

REPORT INFORMATION
  Report Type: Spontaneous
  Country: US (occurrence: US)
  Receive Date: 20160201
  Receipt Date: 20160405
  Transmission Date: 20160815
  Serious: Yes (Other)
  Sender: FDA-Public Use
  Company Number: US-TEVA-630070USA

PATIENT
  Age: 52 Year
  Sex: Female

DRUGS (16)
  1. METABIOTIC [Concomitant]
  2. LISINOPRIL. [Concomitant]
     Active Substance: LISINOPRIL
  3. OMEPRAZOLE. [Concomitant]
     Active Substance: OMEPRAZOLE
  4. EFFEXOR [Concomitant]
     Active Substance: VENLAFAXINE HYDROCHLORIDE
  5. BIOTIN [Concomitant]
     Active Substance: BIOTIN
  6. LEVOTHYROXINE. [Concomitant]
     Active Substance: LEVOTHYROXINE
  7. FOLIC ACID. [Concomitant]
     Active Substance: FOLIC ACID
  8. ZECUITY [Suspect]
     Active Substance: SUMATRIPTAN SUCCINATE
     Route: 062
     Dates: start: 201511, end: 201511
  9. ZECUITY [Suspect]
     Active Substance: SUMATRIPTAN SUCCINATE
     Indication: MIGRAINE
     Route: 062
     Dates: start: 20160114, end: 20160114
  10. ZECUITY [Suspect]
     Active Substance: SUMATRIPTAN SUCCINATE
     Route: 062
     Dates: start: 20151201, end: 20151201
  11. CALCIUM [Concomitant]
     Active Substance: CALCIUM
  12. PROBIOTICA [Concomitant]
     Active Substance: PROBIOTICS NOS
  13. VITAMIN E [Concomitant]
     Active Substance: .ALPHA.-TOCOPHEROL
  14. METFORMIN [Concomitant]
     Active Substance: METFORMIN HYDROCHLORIDE
  15. ZECUITY [Suspect]
     Active Substance: SUMATRIPTAN SUCCINATE
     Route: 062
     Dates: start: 20160115, end: 20160115
  16. VITAMIN B12 [Concomitant]
     Active Substance: CYANOCOBALAMIN

REACTIONS (5)
  - Application site burn [Recovered/Resolved]
  - Application site inflammation [Recovered/Resolved]
  - Application site irritation [Recovered/Resolved]
  - Application site pruritus [Recovered/Resolved]
  - Application site erythema [Recovered/Resolved]

NARRATIVE: CASE EVENT DATE: 201511
